FAERS Safety Report 6706291-6 (Version None)
Quarter: 2010Q2

REPORT INFORMATION
  Report Type: 
  Country: None (occurrence: None)
  Receive Date: 20100503
  Receipt Date: 20100422
  Transmission Date: 20101027
  Serious: Yes (Other)
  Sender: FDA-Public Use
  Company Number: JP-PFIZER INC-2010052160

PATIENT
  Age: 3 Year
  Sex: Female

DRUGS (1)
  1. ZITHROMAX [Suspect]
     Route: 048
     Dates: start: 20100421

REACTIONS (2)
  - EPISTAXIS [None]
  - HYPOTHERMIA [None]
